FAERS Safety Report 11990566 (Version 1)
Quarter: 2016Q1

REPORT INFORMATION
  Report Type: Report from Study
  Country: CN (occurrence: CN)
  Receive Date: 20160202
  Receipt Date: 20160202
  Transmission Date: 20160526
  Serious: Yes (Death, Hospitalization)
  Sender: FDA-Public Use
  Company Number: CN-BAYER-2016-017784

PATIENT

DRUGS (4)
  1. ASPIRIN. [Interacting]
     Active Substance: ASPIRIN
     Indication: VERTEBRAL ARTERY STENOSIS
     Dosage: 100 MG, UNK
  2. CLOPIDOGREL [Interacting]
     Active Substance: CLOPIDOGREL BISULFATE
     Indication: BASILAR ARTERY STENOSIS
     Dosage: 300 MG, ONCE
  3. CLOPIDOGREL [Interacting]
     Active Substance: CLOPIDOGREL BISULFATE
     Indication: BASILAR ARTERY STENOSIS
     Dosage: 100 MG, UNK
  4. ASPIRIN. [Suspect]
     Active Substance: ASPIRIN
     Indication: VERTEBRAL ARTERY STENOSIS
     Dosage: 300 MG, ONCE

REACTIONS (2)
  - Labelled drug-drug interaction medication error [None]
  - Gastrointestinal haemorrhage [Fatal]
